FAERS Safety Report 21627685 (Version 1)
Quarter: 2022Q4

REPORT INFORMATION
  Report Type: Spontaneous
  Country: GR (occurrence: GR)
  Receive Date: 20221122
  Receipt Date: 20221122
  Transmission Date: 20230113
  Serious: Yes (Other)
  Sender: FDA-Public Use
  Company Number: GR-PFIZER INC-PV202200103994

PATIENT

DRUGS (2)
  1. TAVOR (LORAZEPAM) [Suspect]
     Active Substance: LORAZEPAM
     Dosage: 1 MG
  2. MEPERIDINE [Suspect]
     Active Substance: MEPERIDINE
     Dosage: 0.5 AMP
     Route: 058

REACTIONS (2)
  - Syncope [Unknown]
  - Oxygen saturation decreased [Unknown]
